FAERS Safety Report 10253581 (Version 1)
Quarter: 2014Q2

REPORT INFORMATION
  Report Type: Spontaneous
  Country: US (occurrence: US)
  Receive Date: 20140623
  Receipt Date: 20140623
  Transmission Date: 20141212
  Serious: Yes (Other)
  Sender: FDA-Public Use
  Company Number: CHPA2014US008348

PATIENT
  Age: 56 Year
  Sex: Female

DRUGS (4)
  1. EXCEDRIN PM [Suspect]
     Indication: INSOMNIA
     Dosage: 1 DF, UNK
     Route: 048
  2. EXCEDRIN PM [Suspect]
     Dosage: 0.5 DF, UNK
     Route: 048
  3. OLEPTRO [Suspect]
     Indication: RESTLESS LEGS SYNDROME
     Dosage: UNK
  4. AMBIEN [Concomitant]
     Indication: INSOMNIA

REACTIONS (5)
  - Dyspnoea [Unknown]
  - Swollen tongue [Unknown]
  - Pharyngeal oedema [Unknown]
  - Wrong technique in drug usage process [Unknown]
  - Expired product administered [Unknown]
